FAERS Safety Report 23661331 (Version 3)
Quarter: 2024Q2

REPORT INFORMATION
  Report Type: Spontaneous
  Country: US (occurrence: US)
  Receive Date: 20240322
  Receipt Date: 20240514
  Transmission Date: 20240716
  Serious: No
  Sender: FDA-Public Use
  Company Number: US-AMGEN-USASP2024058038

PATIENT
  Age: 75 Year
  Sex: Female

DRUGS (2)
  1. REPATHA [Suspect]
     Active Substance: EVOLOCUMAB
     Indication: Blood cholesterol increased
     Dosage: 140 MILLIGRAM/1 ML, Q2WK
     Route: 058
     Dates: start: 20240205
  2. REPATHA [Suspect]
     Active Substance: EVOLOCUMAB
     Dosage: 140 MILLIGRAM/1 ML, Q2WK
     Route: 058
     Dates: start: 20240205

REACTIONS (8)
  - Accidental exposure to product [Unknown]
  - Device difficult to use [Unknown]
  - Product storage error [Unknown]
  - Intercepted product administration error [Unknown]
  - Injection site indentation [Unknown]
  - Device use error [Unknown]
  - Incorrect dose administered by device [Unknown]
  - Injection site haemorrhage [Unknown]

NARRATIVE: CASE EVENT DATE: 20240318
